FAERS Safety Report 11294627 (Version 1)
Quarter: 2015Q2

REPORT INFORMATION
  Report Type: Spontaneous
  Country: US (occurrence: None)
  Receive Date: 20150623
  Receipt Date: 20150623
  Transmission Date: 20150821
  Serious: Yes (Other)
  Sender: FDA-Public Use
  Company Number: RB-76790-2015

PATIENT
  Age: 49 Year
  Sex: Male

DRUGS (1)
  1. MUCINEX DM [Suspect]
     Active Substance: DEXTROMETHORPHAN HYDROBROMIDE\GUAIFENESIN
     Indication: PRODUCT USED FOR UNKNOWN INDICATION
     Dosage: (TOOK 1 TABLET FOR THE FIRST TIME 1 DAY AGO AND 4-5 HRS LATER HE TOOK 2 MORE UNKNOWN)
     Dates: start: 20150424

REACTIONS (4)
  - Pruritus generalised [None]
  - Inappropriate schedule of drug administration [None]
  - Nausea [None]
  - Delusion [None]

NARRATIVE: CASE EVENT DATE: 201504
